FAERS Safety Report 19865625 (Version 3)
Quarter: 2021Q4

REPORT INFORMATION
  Report Type: Spontaneous
  Country: US (occurrence: None)
  Receive Date: 20210921
  Receipt Date: 20211107
  Transmission Date: 20220304
  Serious: No
  Sender: FDA-Public Use
  Company Number: 2021A709963

PATIENT
  Sex: Male
  Weight: 131.5 kg

DRUGS (4)
  1. SYMBICORT [Suspect]
     Active Substance: BUDESONIDE\FORMOTEROL FUMARATE DIHYDRATE
     Indication: Chronic obstructive pulmonary disease
     Dosage: SYMBICORT 160/4.5 MCG, 2 PUFFS, BID, TAKES MORNING DOSE, NOT THE NIGHT DOSE
     Route: 055
  2. ELIQUIS [Concomitant]
     Active Substance: APIXABAN
  3. METFORMIN [Concomitant]
     Active Substance: METFORMIN HYDROCHLORIDE
  4. ROPATHA [Concomitant]
     Indication: Blood cholesterol abnormal

REACTIONS (18)
  - Chronic obstructive pulmonary disease [Unknown]
  - Taste disorder [Unknown]
  - Aortic aneurysm [Unknown]
  - General physical health deterioration [Unknown]
  - Blood urine [Unknown]
  - Haemorrhage [Unknown]
  - Diabetes mellitus [Unknown]
  - Muscle disorder [Unknown]
  - Myalgia [Unknown]
  - Atrial fibrillation [Unknown]
  - Drug ineffective [Unknown]
  - Intentional product misuse [Unknown]
  - Intentional device use issue [Unknown]
  - Incorrect dose administered by device [Unknown]
  - Inability to afford medication [Unknown]
  - Insurance issue [Unknown]
  - Device defective [Unknown]
  - Device malfunction [Unknown]
